FAERS Safety Report 25729349 (Version 1)
Quarter: 2025Q3

REPORT INFORMATION
  Report Type: Spontaneous
  Country: EU (occurrence: EU)
  Receive Date: 20250827
  Receipt Date: 20250827
  Transmission Date: 20251021
  Serious: Yes (Life-Threatening, Other)
  Sender: CELLTRION
  Company Number: None

PATIENT

DRUGS (17)
  1. INFLIXIMAB [Suspect]
     Active Substance: INFLIXIMAB
     Indication: Graft versus host disease
     Route: 042
     Dates: start: 20250607, end: 20250607
  2. INFLIXIMAB [Suspect]
     Active Substance: INFLIXIMAB
     Route: 042
     Dates: start: 20250609, end: 20250609
  3. INFLIXIMAB [Suspect]
     Active Substance: INFLIXIMAB
     Route: 042
     Dates: start: 20250613, end: 20250613
  4. NEORAL [Suspect]
     Active Substance: CYCLOSPORINE
     Indication: Graft versus host disease
     Dates: start: 20250428, end: 20250616
  5. RUXOLITINIB [Concomitant]
     Active Substance: RUXOLITINIB
  6. POSACONAZOLE [Concomitant]
     Active Substance: POSACONAZOLE
     Dates: start: 20250418
  7. PENICILLIN V BENZATHINE [Concomitant]
     Active Substance: PENICILLIN V BENZATHINE
     Dates: start: 20250303
  8. VALACYCLOVIR HYDROCHLORIDE [Concomitant]
     Active Substance: VALACYCLOVIR HYDROCHLORIDE
  9. BACTRIM [Concomitant]
     Active Substance: SULFAMETHOXAZOLE\TRIMETHOPRIM
     Dates: start: 20250422, end: 20250528
  10. BACTRIM [Concomitant]
     Active Substance: SULFAMETHOXAZOLE\TRIMETHOPRIM
     Dates: start: 20250611, end: 20250626
  11. BACTRIM [Concomitant]
     Active Substance: SULFAMETHOXAZOLE\TRIMETHOPRIM
     Dates: start: 202507
  12. LETERMOVIR [Concomitant]
     Active Substance: LETERMOVIR
     Dates: start: 20250418
  13. CASPOFUNGIN ACETATE [Concomitant]
     Active Substance: CASPOFUNGIN ACETATE
     Dates: start: 20250227
  14. OLANZAPINE [Concomitant]
     Active Substance: OLANZAPINE
     Dates: start: 20250418, end: 20250528
  15. OLANZAPINE [Concomitant]
     Active Substance: OLANZAPINE
     Dates: start: 20250618
  16. CELLCEPT [Concomitant]
     Active Substance: MYCOPHENOLATE MOFETIL
     Dates: start: 20250418, end: 20250528
  17. CELLCEPT [Concomitant]
     Active Substance: MYCOPHENOLATE MOFETIL
     Dates: start: 20250617

REACTIONS (3)
  - Posterior reversible encephalopathy syndrome [Recovered/Resolved]
  - Status epilepticus [Recovered/Resolved]
  - Intentional product use issue [Unknown]

NARRATIVE: CASE EVENT DATE: 20250616
